FAERS Safety Report 9224073 (Version 1)
Quarter: 2013Q2

REPORT INFORMATION
  Report Type: Spontaneous
  Country: US (occurrence: US)
  Receive Date: 20130411
  Receipt Date: 20130411
  Transmission Date: 20140414
  Serious: Yes (Other)
  Sender: FDA-Public Use
  Company Number: US-RANBAXY-2013US-67289

PATIENT
  Age: 53 Year
  Sex: Male

DRUGS (7)
  1. GABAPENTIN [Suspect]
     Indication: CENTRAL PAIN SYNDROME
     Dosage: UNK
     Route: 065
  2. PREGABALIN [Suspect]
     Indication: CENTRAL PAIN SYNDROME
     Dosage: UNK
     Route: 065
  3. AMITRIPTYLINE [Suspect]
     Indication: CENTRAL PAIN SYNDROME
     Dosage: UNK
     Route: 065
  4. NORTRIPTYLINE [Suspect]
     Indication: CENTRAL PAIN SYNDROME
     Dosage: UNK
     Route: 065
  5. MORPHINE [Suspect]
     Indication: CENTRAL PAIN SYNDROME
     Dosage: UNK
     Route: 048
  6. HYDROCODONE AND ACETAMINOPHEN [Suspect]
     Indication: CENTRAL PAIN SYNDROME
     Dosage: UNK
     Route: 048
  7. FENTANYL [Suspect]
     Indication: CENTRAL PAIN SYNDROME
     Dosage: UNK
     Route: 065

REACTIONS (4)
  - Sedation [Unknown]
  - Somnolence [Unknown]
  - Cognitive disorder [Unknown]
  - Drug ineffective [Unknown]
